FAERS Safety Report 4829165-4 (Version None)
Quarter: 2005Q4

REPORT INFORMATION
  Report Type: 
  Country: None (occurrence: None)
  Receive Date: 20051027
  Receipt Date: 20050531
  Transmission Date: 20060501
  Serious: Yes (Hospitalization, Other)
  Sender: FDA-Public Use
  Company Number: HQWYE768203AUG04

PATIENT
  Age: 50 Year
  Sex: Female

DRUGS (3)
  1. PREMARIN [Suspect]
  2. COMBIPATCH [Suspect]
  3. PREMPHASE (PREMARIN;CYCRIN 14/14) [Suspect]

REACTIONS (1)
  - BREAST CANCER [None]
